FAERS Safety Report 12278387 (Version 2)
Quarter: 2016Q2

REPORT INFORMATION
  Report Type: Spontaneous
  Country: FR (occurrence: FR)
  Receive Date: 20160418
  Receipt Date: 20160420
  Transmission Date: 20160815
  Serious: Yes (Life-Threatening, Hospitalization)
  Sender: FDA-Public Use
  Company Number: FR-AMGEN-FRASP2016047663

PATIENT
  Age: 3 Year
  Sex: Female
  Weight: 13 kg

DRUGS (3)
  1. NAPROXEN. [Suspect]
     Active Substance: NAPROXEN
     Indication: ARTHRITIS
     Dosage: 25 MG/KG, DAILY
     Route: 048
     Dates: start: 20150907, end: 20160319
  2. ENBREL [Suspect]
     Active Substance: ETANERCEPT
     Indication: JUVENILE IDIOPATHIC ARTHRITIS
     Dosage: 0.4 MG/KG, WEEKLY
     Route: 058
     Dates: start: 20160303, end: 20160319
  3. METHOTREXATE SODIUM. [Suspect]
     Active Substance: METHOTREXATE SODIUM
     Indication: JUVENILE IDIOPATHIC ARTHRITIS
     Dosage: 1.0714 MG (7.5 MG ONCE WEEKLY ON SATURDAYS IN THE MORNING)
     Route: 048
     Dates: start: 20151009, end: 20160319

REACTIONS (3)
  - Drug administered to patient of inappropriate age [Unknown]
  - Product use issue [Unknown]
  - Hepatocellular injury [Recovering/Resolving]

NARRATIVE: CASE EVENT DATE: 20151009
